FAERS Safety Report 9383603 (Version 1)
Quarter: 2013Q3

REPORT INFORMATION
  Report Type: Spontaneous
  Country: US (occurrence: US)
  Receive Date: 20130704
  Receipt Date: 20130704
  Transmission Date: 20140515
  Serious: No
  Sender: FDA-Public Use
  Company Number: US-PFIZER INC-2013197922

PATIENT
  Sex: Male

DRUGS (3)
  1. ADVIL PM [Suspect]
     Dosage: 2 DF, UNK
     Route: 048
  2. ADVIL PM [Interacting]
     Dosage: 3 DF, UNK
     Route: 048
  3. CLARITIN [Interacting]
     Dosage: UNK
     Route: 048

REACTIONS (4)
  - Accidental overdose [Unknown]
  - Drug interaction [Unknown]
  - Somnolence [Unknown]
  - Presyncope [Unknown]
